FAERS Safety Report 14607129 (Version 1)
Quarter: 2018Q1

REPORT INFORMATION
  Report Type: Spontaneous
  Country: US (occurrence: US)
  Receive Date: 20180307
  Receipt Date: 20180307
  Transmission Date: 20180509
  Serious: No
  Sender: FDA-Public Use
  Company Number: US-TEVA-812797ACC

PATIENT
  Age: 59 Year
  Sex: Female

DRUGS (2)
  1. PROGESTERONE. [Suspect]
     Active Substance: PROGESTERONE
  2. PROGESTERONE. [Suspect]
     Active Substance: PROGESTERONE
     Indication: POSTMENOPAUSE
     Dosage: 300 MILLIGRAM DAILY;

REACTIONS (2)
  - Intentional product use issue [Unknown]
  - Acne [Not Recovered/Not Resolved]
